FAERS Safety Report 25262934 (Version 2)
Quarter: 2025Q2

REPORT INFORMATION
  Report Type: Report from Study
  Country: GB (occurrence: GB)
  Receive Date: 20250502
  Receipt Date: 20250507
  Transmission Date: 20250717
  Serious: Yes (Hospitalization, Other)
  Sender: NOVARTIS
  Company Number: GB-002147023-NVSC2025GB064830

PATIENT
  Age: 45 Year
  Sex: Male

DRUGS (1)
  1. MAYZENT [Suspect]
     Active Substance: SIPONIMOD
     Indication: Secondary progressive multiple sclerosis
     Dosage: 2 MG, QD
     Route: 048
     Dates: start: 20240429, end: 20250430

REACTIONS (3)
  - Lower respiratory tract infection [Unknown]
  - Neoplasm malignant [Unknown]
  - Infection [Unknown]

NARRATIVE: CASE EVENT DATE: 20250414
